FAERS Safety Report 10598065 (Version 2)
Quarter: 2015Q1

REPORT INFORMATION
  Report Type: Spontaneous
  Country: DE (occurrence: DE)
  Receive Date: 20141121
  Receipt Date: 20150105
  Transmission Date: 20150720
  Serious: Yes (Death, Other)
  Sender: FDA-Public Use
  Company Number: DE-PFIZER INC-2014318875

PATIENT
  Age: 17 Year
  Sex: Male
  Weight: 70 kg

DRUGS (15)
  1. LINEZOLID. [Concomitant]
     Active Substance: LINEZOLID
     Dosage: 1000 MG, UNK (2 X 500 MG)
     Route: 042
     Dates: start: 20140921, end: 20140928
  2. PHENOBARBITAL. [Concomitant]
     Active Substance: PHENOBARBITAL
     Indication: SEIZURE
     Dosage: 2 SINGLE DOSE WITH 600 MG
     Route: 042
     Dates: start: 20140923, end: 20140923
  3. PIPERACILLIN/TAZOBACTAM [Concomitant]
     Dosage: 13.5 G, UNK (3 X 4.5 G)
     Route: 042
     Dates: start: 20140918, end: 20140921
  4. HALOPERIDOL. [Concomitant]
     Active Substance: HALOPERIDOL
     Dosage: 5 MG, SINGLE
     Route: 030
     Dates: start: 20140915
  5. AMPHOTERICIN B. [Concomitant]
     Active Substance: AMPHOTERICIN B
     Indication: PYREXIA
     Dosage: UNK
     Dates: start: 20140821, end: 20140912
  6. VANCOMYCIN [Concomitant]
     Active Substance: VANCOMYCIN
     Dosage: UNK
     Dates: start: 20140821, end: 20140915
  7. COTRIMOXAZOL [Concomitant]
     Dosage: 300 MG, DAILY (2 X 150 MG DAILY, SINCE 24SEP2014 ONLY FRIDAY TILL SUNDAY)
     Route: 042
     Dates: start: 20140921, end: 20140928
  8. CIPROFLOXACIN. [Concomitant]
     Active Substance: CIPROFLOXACIN
     Dosage: 800 MG, UNK (2X400 MG)
     Route: 042
     Dates: start: 20140915, end: 20140918
  9. VFEND [Suspect]
     Active Substance: VORICONAZOLE
     Dosage: 520 MG (2X260 MG), UNK
     Route: 042
     Dates: start: 20140913, end: 20140918
  10. FOSFOMYCIN [Concomitant]
     Active Substance: FOSFOMYCIN
     Dosage: 12 G, UNK (3 X 4 G)
     Route: 042
     Dates: start: 20140915, end: 20140918
  11. VANCOMYCIN [Concomitant]
     Active Substance: VANCOMYCIN
     Dosage: AFTER LEVEL LT 15?G/ML
     Dates: start: 20140918, end: 20140921
  12. OMEPRAZOL [Concomitant]
     Active Substance: OMEPRAZOLE
     Indication: PROPHYLAXIS
     Dosage: 20 MG, 1X/DAY
     Route: 042
     Dates: end: 20140925
  13. VFEND [Suspect]
     Active Substance: VORICONAZOLE
     Dosage: 360 MG (2X180 MG), UNK
     Route: 042
     Dates: start: 20140918, end: 20140923
  14. VFEND [Suspect]
     Active Substance: VORICONAZOLE
     Indication: ASPERGILLUS INFECTION
     Dosage: 780 MG (2X390 MG), UNK
     Route: 042
     Dates: start: 20140912
  15. MEROPENEM. [Concomitant]
     Active Substance: MEROPENEM
     Dosage: 2 X 1.3 G (WITH INTERRUPTION)
     Dates: start: 20140821, end: 20140928

REACTIONS (3)
  - Brain oedema [Fatal]
  - Coma [Fatal]
  - Drug level increased [Unknown]
